FAERS Safety Report 8987605 (Version 1)
Quarter: 2012Q4

REPORT INFORMATION
  Report Type: 
  Country: US (occurrence: US)
  Receive Date: 20121227
  Receipt Date: 20121227
  Transmission Date: 20130627
  Serious: Yes (Other)
  Sender: FDA-Public Use
  Company Number: US-BAYER-2012-133967

PATIENT
  Age: 57 Year
  Sex: Female

DRUGS (2)
  1. BETASERON [Suspect]
     Indication: RELAPSING-REMITTING MULTIPLE SCLEROSIS
     Dosage: 8 miu, QOD
     Route: 058
     Dates: start: 20070531
  2. IBUPROFEN [Concomitant]
     Dosage: 1 DF, UNK

REACTIONS (6)
  - Feeling cold [Recovered/Resolved]
  - Pain [Recovered/Resolved]
  - Tremor [Recovered/Resolved]
  - Coordination abnormal [Recovered/Resolved]
  - Abasia [Recovered/Resolved]
  - Fatigue [None]
